FAERS Safety Report 8053175-X (Version None)
Quarter: 2012Q1

REPORT INFORMATION
  Report Type: 
  Country: None (occurrence: None)
  Receive Date: 20120118
  Receipt Date: 20120116
  Transmission Date: 20120608
  Serious: Yes (Hospitalization)
  Sender: FDA-Public Use
  Company Number: FR-JNJFOC-20110509549

PATIENT
  Sex: Male

DRUGS (9)
  1. LEUCOVORIN CALCIUM [Concomitant]
     Route: 048
  2. ABACAVIR SULFATE AND LAMIVUDINE [Suspect]
     Indication: HIV INFECTION
     Route: 048
     Dates: start: 20110308, end: 20110401
  3. OMEXEL [Concomitant]
     Route: 048
  4. CETIRIZINE [Concomitant]
     Indication: RASH
  5. NORVIR [Suspect]
     Indication: HIV INFECTION
     Route: 048
     Dates: start: 20110308, end: 20110401
  6. ENALAPRIL MALEATE [Concomitant]
  7. BACTRIM [Suspect]
     Indication: PNEUMOCYSTIS JIROVECI PNEUMONIA
     Route: 048
     Dates: start: 20110308, end: 20110401
  8. PREZISTA [Suspect]
     Indication: HIV INFECTION
     Route: 048
     Dates: start: 20110308, end: 20110401
  9. UVEDOSE [Concomitant]
     Route: 048

REACTIONS (3)
  - ANGIOEDEMA [None]
  - PHOTOSENSITIVITY REACTION [None]
  - ERYTHEMA [None]
